FAERS Safety Report 4428763-X (Version None)
Quarter: 2004Q3

REPORT INFORMATION
  Report Type: 
  Country: None (occurrence: None)
  Receive Date: 20040818
  Receipt Date: 20040503
  Transmission Date: 20050211
  Serious: Yes (Other)
  Sender: FDA-Public Use
  Company Number: US-BRISTOL-MYERS SQUIBB COMPANY-12577904

PATIENT
  Age: 36 Year
  Sex: Female
  Weight: 68 kg

DRUGS (7)
  1. TEQUIN [Suspect]
     Indication: PNEUMONIA
     Route: 048
     Dates: start: 20040408, end: 20040410
  2. BENADRYL [Concomitant]
     Dates: start: 20040411
  3. CLARINEX [Concomitant]
     Dates: start: 20040411
  4. ZITHROMAX [Concomitant]
     Route: 048
     Dates: end: 20040415
  5. ZANTAC [Concomitant]
     Route: 048
  6. VISTARIL [Concomitant]
  7. PREDNISONE [Concomitant]

REACTIONS (3)
  - PRURITUS [None]
  - SWELLING [None]
  - URTICARIA [None]
